FAERS Safety Report 21519846 (Version 4)
Quarter: 2022Q4

REPORT INFORMATION
  Report Type: Report from Study
  Country: US (occurrence: US)
  Receive Date: 20221028
  Receipt Date: 20221219
  Transmission Date: 20230112
  Serious: No
  Sender: FDA-Public Use
  Company Number: US-NOVARTISTESTPH-NVSC2022US241234

PATIENT
  Sex: Female

DRUGS (1)
  1. COSENTYX [Suspect]
     Active Substance: SECUKINUMAB
     Indication: Ankylosing spondylitis
     Dosage: UNK
     Route: 065

REACTIONS (5)
  - Concussion [Not Recovered/Not Resolved]
  - Road traffic accident [Unknown]
  - Confusional state [Not Recovered/Not Resolved]
  - Upper limb fracture [Unknown]
  - Joint dislocation [Unknown]
